FAERS Safety Report 12649163 (Version 1)
Quarter: 2016Q3

REPORT INFORMATION
  Report Type: Spontaneous
  Country: IT (occurrence: IT)
  Receive Date: 20160812
  Receipt Date: 20160812
  Transmission Date: 20161109
  Serious: Yes (Other)
  Sender: FDA-Public Use
  Company Number: IT-JNJFOC-20160808119

PATIENT
  Age: 64 Year
  Sex: Male

DRUGS (3)
  1. OLYSIO [Suspect]
     Active Substance: SIMEPREVIR
     Indication: HEPATITIS C
     Route: 048
     Dates: start: 20150408, end: 20150701
  2. SOVALDI [Suspect]
     Active Substance: SOFOSBUVIR
     Indication: HEPATITIS C
     Route: 065
     Dates: start: 20150408, end: 20150701
  3. PAROXETINE. [Concomitant]
     Active Substance: PAROXETINE
     Route: 048

REACTIONS (1)
  - Hepatitis C [Recovered/Resolved]

NARRATIVE: CASE EVENT DATE: 20150924
